FAERS Safety Report 17290997 (Version 1)
Quarter: 2020Q1

REPORT INFORMATION
  Report Type: Spontaneous
  Country: FR (occurrence: FR)
  Receive Date: 20200121
  Receipt Date: 20200121
  Transmission Date: 20200409
  Serious: Yes (Hospitalization)
  Sender: FDA-Public Use
  Company Number: FR-BAYER-200610227BFR

PATIENT
  Age: 27 Year
  Sex: Male

DRUGS (3)
  1. IZILOX [Suspect]
     Active Substance: MOXIFLOXACIN HYDROCHLORIDE
     Indication: SINUSITIS
     Dosage: 400 MG
     Route: 048
     Dates: start: 20060204, end: 20060210
  2. DOLIPRANE [Concomitant]
     Active Substance: ACETAMINOPHEN
     Indication: SINUSITIS
     Dates: start: 20060204
  3. RHINOFLUIMUCIL [Concomitant]
     Active Substance: ACETYLCYSTEINE\BENZALKONIUM CHLORIDE\TUAMINOHEPTANE SULFATE
     Indication: SINUSITIS
     Dates: start: 20060204

REACTIONS (18)
  - Weight decreased [Not Recovered/Not Resolved]
  - Nausea [Not Recovered/Not Resolved]
  - Decreased appetite [Recovered/Resolved with Sequelae]
  - Drug intolerance [None]
  - Abdominal pain [Recovering/Resolving]
  - Hypotension [Unknown]
  - Malaise [Recovered/Resolved]
  - Drug ineffective [None]
  - Adverse event [None]
  - Flatulence [Recovering/Resolving]
  - Oral fungal infection [Not Recovered/Not Resolved]
  - Palpitations [Recovered/Resolved]
  - Tremor [Recovered/Resolved]
  - Tachycardia [Recovered/Resolved]
  - Muscular weakness [Recovered/Resolved]
  - Vertigo [Recovered/Resolved]
  - Tremor [Recovered/Resolved]
  - Muscle spasms [Unknown]

NARRATIVE: CASE EVENT DATE: 200602
